FAERS Safety Report 24773843 (Version 1)
Quarter: 2024Q4

REPORT INFORMATION
  Report Type: Spontaneous
  Country: CN (occurrence: CN)
  Receive Date: 20241225
  Receipt Date: 20241225
  Transmission Date: 20250115
  Serious: Yes (Other)
  Sender: ASTELLAS
  Company Number: CN-ASTELLAS-2024-AER-027552

PATIENT
  Age: 57 Year
  Sex: Female
  Weight: 45.0 kg

DRUGS (6)
  1. ISAVUCONAZOLE [Suspect]
     Active Substance: ISAVUCONAZOLE
     Indication: Product used for unknown indication
     Route: 042
     Dates: start: 20240824, end: 202408
  2. ISAVUCONAZOLE [Suspect]
     Active Substance: ISAVUCONAZOLE
     Indication: Anti-infective therapy
     Route: 048
     Dates: start: 20240827, end: 20240910
  3. ISAVUCONAZOLE [Suspect]
     Active Substance: ISAVUCONAZOLE
     Route: 048
     Dates: start: 20240910, end: 20241009
  4. VORICONAZOLE [Suspect]
     Active Substance: VORICONAZOLE
     Indication: Anti-infective therapy
     Route: 048
     Dates: start: 20241009, end: 20241024
  5. PANTOPRAZOLE SODIUM ANHYDROUS [Concomitant]
     Active Substance: PANTOPRAZOLE SODIUM ANHYDROUS
     Indication: Gastrointestinal disorder therapy
     Route: 065
  6. METHYLCOBALAMIN [Concomitant]
     Active Substance: METHYLCOBALAMIN
     Indication: Nervous system disorder prophylaxis
     Route: 065

REACTIONS (8)
  - Hepatic enzyme increased [Not Recovered/Not Resolved]
  - Drug level increased [Unknown]
  - Cholestatic liver injury [Not Recovered/Not Resolved]
  - Cholestasis [Unknown]
  - Gallbladder enlargement [Unknown]
  - Dry mouth [Unknown]
  - Faeces hard [Unknown]
  - Off label use [Unknown]

NARRATIVE: CASE EVENT DATE: 20240827
